FAERS Safety Report 8559184-6 (Version None)
Quarter: 2012Q3

REPORT INFORMATION
  Report Type: 
  Country: None (occurrence: None)
  Receive Date: 20120720
  Receipt Date: 20120716
  Transmission Date: 20120928
  Serious: Yes (Hospitalization)
  Sender: FDA-Public Use
  Company Number: 2012S1000067

PATIENT
  Age: 69 Year
  Sex: Male

DRUGS (9)
  1. LIVALO [Suspect]
     Dosage: 0.5 DF; PO, 2 MG; PO
     Route: 048
     Dates: start: 20111001, end: 20111201
  2. LIVALO [Suspect]
     Dosage: 0.5 DF; PO, 2 MG; PO
     Route: 048
     Dates: start: 20111201
  3. ULORIC [Concomitant]
  4. ARICEPT [Concomitant]
  5. TOPROL-XL [Concomitant]
  6. COUMADIN [Concomitant]
  7. PLAVIX [Concomitant]
  8. ASPIRIN [Concomitant]
  9. LOVENOX [Concomitant]

REACTIONS (4)
  - WRONG TECHNIQUE IN DRUG USAGE PROCESS [None]
  - LARGE INTESTINAL HAEMORRHAGE [None]
  - STENT PLACEMENT [None]
  - POST PROCEDURAL HAEMORRHAGE [None]
